FAERS Safety Report 9086627 (Version 1)
Quarter: 2013Q1

REPORT INFORMATION
  Report Type: Report from Study
  Country: US (occurrence: US)
  Receive Date: 20130131
  Receipt Date: 20130131
  Transmission Date: 20140127
  Serious: No
  Sender: FDA-Public Use
  Company Number: US-ABBOTT-12P-163-0997521-00

PATIENT
  Age: 38 None
  Sex: Female
  Weight: 57.66 kg

DRUGS (8)
  1. HUMIRA [Suspect]
     Indication: RHEUMATOID ARTHRITIS
     Dates: start: 201208
  2. PREDNISONE [Concomitant]
     Indication: RHEUMATOID ARTHRITIS
  3. VICODIN [Concomitant]
     Indication: PAIN
  4. CELEBREX [Concomitant]
     Indication: RHEUMATOID ARTHRITIS
  5. FOSAMAX [Concomitant]
     Indication: OSTEOPOROSIS
  6. BIRTH CONTROL PILL [Concomitant]
     Indication: CONTRACEPTION
  7. VITAMIN B3 [Concomitant]
     Indication: VITAMIN SUPPLEMENTATION
  8. LORAZEPAM [Concomitant]
     Indication: ANXIETY

REACTIONS (2)
  - Alopecia [Not Recovered/Not Resolved]
  - Acne [Not Recovered/Not Resolved]
